FAERS Safety Report 4896586-3 (Version None)
Quarter: 2005Q4

REPORT INFORMATION
  Report Type: 
  Country: None (occurrence: None)
  Receive Date: 20051223
  Receipt Date: 20051012
  Transmission Date: 20060501
  Serious: Yes (Other)
  Sender: FDA-Public Use
  Company Number: 421072

PATIENT
  Age: 46 Year
  Sex: Female
  Weight: 136.1 kg

DRUGS (3)
  1. COPEGUS [Suspect]
     Indication: HEPATITIS C
     Dosage: ORAL
     Route: 048
     Dates: start: 20050708
  2. PEG-INTRON [Suspect]
     Indication: HEPATITIS C
     Dosage: SUBCUTANEOUS
     Route: 058
     Dates: start: 20050708
  3. ACETAMINOPHEN [Concomitant]

REACTIONS (2)
  - HALLUCINATION [None]
  - SUICIDAL IDEATION [None]
